FAERS Safety Report 4698313-1 (Version None)
Quarter: 2005Q2

REPORT INFORMATION
  Report Type: 
  Country: None (occurrence: None)
  Receive Date: 20050621
  Receipt Date: 20050614
  Transmission Date: 20051028
  Serious: Yes (Life-Threatening)
  Sender: FDA-Public Use
  Company Number: 2005-128952-NL

PATIENT
  Age: 64 Year
  Sex: Male

DRUGS (9)
  1. VECURONIUM BROMIDE [Suspect]
     Indication: GENERAL ANAESTHESIA
     Dosage: 13 MG ONCE
     Route: 042
     Dates: start: 20041022, end: 20041022
  2. PROPOFOL [Suspect]
     Indication: GENERAL ANAESTHESIA
     Dosage: INTRAVENOUS (NOS)
     Route: 042
     Dates: start: 20041022, end: 20041022
  3. FENTANYL CITRATE [Suspect]
     Indication: GENERAL ANAESTHESIA
     Dosage: 100 UG ONCE/50UG ONCE/50 UG ONCE/50 UG ONCE/50 UG ONCE/50 UG ONCE/50 UG ONCE INTRAVENOUS (NOS)
     Route: 042
     Dates: start: 20041022, end: 20041022
  4. FENTANYL CITRATE [Suspect]
     Indication: GENERAL ANAESTHESIA
     Dosage: 100 UG ONCE/50UG ONCE/50 UG ONCE/50 UG ONCE/50 UG ONCE/50 UG ONCE/50 UG ONCE INTRAVENOUS (NOS)
     Route: 042
     Dates: start: 20041022, end: 20041022
  5. FENTANYL CITRATE [Suspect]
     Indication: GENERAL ANAESTHESIA
     Dosage: 100 UG ONCE/50UG ONCE/50 UG ONCE/50 UG ONCE/50 UG ONCE/50 UG ONCE/50 UG ONCE INTRAVENOUS (NOS)
     Route: 042
     Dates: start: 20041022, end: 20041022
  6. FENTANYL CITRATE [Suspect]
     Indication: GENERAL ANAESTHESIA
     Dosage: 100 UG ONCE/50UG ONCE/50 UG ONCE/50 UG ONCE/50 UG ONCE/50 UG ONCE/50 UG ONCE INTRAVENOUS (NOS)
     Route: 042
     Dates: start: 20041022, end: 20041022
  7. FENTANYL CITRATE [Suspect]
     Indication: GENERAL ANAESTHESIA
     Dosage: 100 UG ONCE/50UG ONCE/50 UG ONCE/50 UG ONCE/50 UG ONCE/50 UG ONCE/50 UG ONCE INTRAVENOUS (NOS)
     Route: 042
     Dates: start: 20041022, end: 20041022
  8. FENTANYL CITRATE [Suspect]
     Indication: GENERAL ANAESTHESIA
     Dosage: 100 UG ONCE/50UG ONCE/50 UG ONCE/50 UG ONCE/50 UG ONCE/50 UG ONCE/50 UG ONCE INTRAVENOUS (NOS)
     Route: 042
     Dates: start: 20041022, end: 20041022
  9. FENTANYL CITRATE [Suspect]
     Indication: GENERAL ANAESTHESIA
     Dosage: 100 UG ONCE/50UG ONCE/50 UG ONCE/50 UG ONCE/50 UG ONCE/50 UG ONCE/50 UG ONCE INTRAVENOUS (NOS)
     Route: 042
     Dates: start: 20041022, end: 20041022

REACTIONS (6)
  - ATRIOVENTRICULAR BLOCK COMPLETE [None]
  - AUTONOMIC NEUROPATHY [None]
  - CARDIAC ARREST [None]
  - CORONARY ARTERY DISEASE [None]
  - SINUS BRADYCARDIA [None]
  - VAGUS NERVE DISORDER [None]
